FAERS Safety Report 13279788 (Version 1)
Quarter: 2017Q1

REPORT INFORMATION
  Report Type: Spontaneous
  Country: US (occurrence: US)
  Receive Date: 20170228
  Receipt Date: 20170228
  Transmission Date: 20170428
  Serious: Yes (Other)
  Sender: FDA-Public Use
  Company Number: None

PATIENT
  Age: 8 Year
  Sex: Female
  Weight: 33.3 kg

DRUGS (1)
  1. MIRALAX [Suspect]
     Active Substance: POLYETHYLENE GLYCOL 3350
     Indication: CONSTIPATION
     Dosage: ?          QUANTITY:1 1 CAPFUL;?
     Route: 048
     Dates: start: 20160301, end: 20170228

REACTIONS (4)
  - Product use issue [None]
  - Depression [None]
  - Incorrect drug administration duration [None]
  - Social avoidant behaviour [None]

NARRATIVE: CASE EVENT DATE: 20160801
